FAERS Safety Report 9169468 (Version 3)
Quarter: 2013Q3

REPORT INFORMATION
  Report Type: Report from Study
  Country: JP (occurrence: JP)
  Receive Date: 20130318
  Receipt Date: 20130719
  Transmission Date: 20140515
  Serious: Yes (Death, Other)
  Sender: FDA-Public Use
  Company Number: JP-OTSUKA-JP-2013-10626

PATIENT
  Age: 79 Year
  Sex: Male
  Weight: 62.6 kg

DRUGS (5)
  1. SAMSCA [Suspect]
     Indication: FLUID RETENTION
     Dosage: 15 MG MILLIGRAM(S), QAM
     Route: 048
     Dates: start: 20121007, end: 20121012
  2. WARFARIN [Concomitant]
     Indication: PROPHYLAXIS
     Dosage: 2 MG MILLIGRAM(S), DAILY DOSE
     Route: 048
     Dates: end: 20121012
  3. ARTIST [Concomitant]
     Indication: CARDIAC FAILURE
     Dosage: 2.5 MG MILLIGRAM(S), DAILY DOSE
     Route: 048
     Dates: end: 20121012
  4. RENIVACE [Concomitant]
     Indication: CARDIAC FAILURE
     Dosage: 2.5 MG MILLIGRAM(S), DAILY DOSE
     Route: 048
     Dates: end: 20121012
  5. LASIX [Concomitant]
     Indication: CARDIAC FAILURE
     Dosage: 40 MG MILLIGRAM(S), DAILY DOSE
     Route: 048
     Dates: end: 20121012

REACTIONS (5)
  - Aspartate aminotransferase increased [Unknown]
  - Blood urea increased [Unknown]
  - Cardiac failure [Fatal]
  - Hypernatraemia [Unknown]
  - No therapeutic response [Unknown]
